FAERS Safety Report 19357866 (Version 1)
Quarter: 2021Q2

REPORT INFORMATION
  Report Type: Spontaneous
  Country: US (occurrence: US)
  Receive Date: 20210602
  Receipt Date: 20210602
  Transmission Date: 20210717
  Serious: No
  Sender: FDA-Public Use
  Company Number: US-BAYER-2021-146450

PATIENT
  Age: 23 Year
  Sex: Female

DRUGS (1)
  1. SKYLA [Suspect]
     Active Substance: LEVONORGESTREL
     Indication: CONTRACEPTION
     Dosage: 14  ?G PER DAY, CONTINUOUSLY
     Route: 015
     Dates: start: 201905

REACTIONS (2)
  - Device use error [None]
  - Device placement issue [None]

NARRATIVE: CASE EVENT DATE: 201905
